FAERS Safety Report 26213313 (Version 1)
Quarter: 2025Q4

REPORT INFORMATION
  Report Type: Spontaneous
  Country: US (occurrence: US)
  Receive Date: 20251230
  Receipt Date: 20251230
  Transmission Date: 20260117
  Serious: Yes (Other)
  Sender: INCYTE
  Company Number: US-INCYTE CORPORATION-2025IN014420

PATIENT

DRUGS (2)
  1. JAKAFI [Suspect]
     Active Substance: RUXOLITINIB
     Indication: Polycythaemia vera
     Dosage: 2X5 MG TABLETS IN THE MORNING AND 1X5 MG TABLET EVERY AFTERNOON
     Route: 061
  2. JAKAFI [Suspect]
     Active Substance: RUXOLITINIB
     Dosage: 5 MILLIGRAM, QD
     Route: 061

REACTIONS (4)
  - Acute leukaemia [Unknown]
  - Polycythaemia vera [Unknown]
  - Laboratory test abnormal [Unknown]
  - Disease progression [Unknown]
